FAERS Safety Report 6245555-X (Version None)
Quarter: 2009Q2

REPORT INFORMATION
  Report Type: 
  Country: None (occurrence: None)
  Receive Date: 20090619
  Receipt Date: 20090408
  Transmission Date: 20091009
  Serious: No
  Sender: FDA-Public Use
  Company Number: ALL1-2009-00940

PATIENT
  Age: 29 Year
  Sex: Male
  Weight: 88.4 kg

DRUGS (1)
  1. VYVANSE [Suspect]
     Indication: ATTENTION DEFICIT/HYPERACTIVITY DISORDER
     Dosage: 70 MG, 1X/DAY:QD, ORAL
     Route: 048
     Dates: start: 20080901

REACTIONS (3)
  - BACK PAIN [None]
  - DRUG EFFECT INCREASED [None]
  - INSOMNIA [None]
